FAERS Safety Report 8111095-6 (Version None)
Quarter: 2012Q1

REPORT INFORMATION
  Report Type: 
  Country: None (occurrence: None)
  Receive Date: 20120203
  Receipt Date: 20110412
  Transmission Date: 20120608
  Serious: No
  Sender: FDA-Public Use
  Company Number: US-GLAXOSMITHKLINE-A0922694A

PATIENT
  Sex: Female

DRUGS (2)
  1. ZOLOFT [Suspect]
  2. LAMICTAL [Suspect]
     Indication: CONVULSION
     Dosage: 100MG TWICE PER DAY
     Route: 048
     Dates: start: 20000101

REACTIONS (1)
  - MATERNAL EXPOSURE DURING PREGNANCY [None]
